FAERS Safety Report 4936496-6 (Version None)
Quarter: 2006Q1

REPORT INFORMATION
  Report Type: 
  Country: None (occurrence: None)
  Receive Date: 20060307
  Receipt Date: 20050202
  Transmission Date: 20060701
  Serious: Yes (Hospitalization, Disabling, Other)
  Sender: FDA-Public Use
  Company Number: US-MERCK-0502USA00370

PATIENT
  Age: 59 Year
  Sex: Female
  Weight: 118 kg

DRUGS (1)
  1. VIOXX [Suspect]
     Indication: ARTHRITIS
     Route: 048
     Dates: start: 19990101, end: 20040901

REACTIONS (11)
  - AMNESIA [None]
  - CARDIAC DISORDER [None]
  - CEREBROVASCULAR ACCIDENT [None]
  - CHEST PAIN [None]
  - DIABETES MELLITUS [None]
  - EMBOLISM [None]
  - EYE DISORDER [None]
  - HEART RATE IRREGULAR [None]
  - MEMORY IMPAIRMENT [None]
  - ROAD TRAFFIC ACCIDENT [None]
  - VISUAL FIELD DEFECT [None]
